FAERS Safety Report 20045495 (Version 3)
Quarter: 2021Q4

REPORT INFORMATION
  Report Type: Report from Study
  Country: US (occurrence: US)
  Receive Date: 20211108
  Receipt Date: 20211124
  Transmission Date: 20220303
  Serious: Yes (Hospitalization)
  Sender: FDA-Public Use
  Company Number: US-PFIZER INC-202101493806

PATIENT
  Age: 5 Year
  Sex: Male
  Weight: 25.2 kg

DRUGS (7)
  1. VINCRISTINE SULFATE [Suspect]
     Active Substance: VINCRISTINE SULFATE
     Indication: Acute lymphocytic leukaemia
     Dosage: 1.4 MG, ONCE
     Route: 042
     Dates: start: 20210826
  2. RUXOLITINIB [Suspect]
     Active Substance: RUXOLITINIB
     Indication: Acute lymphocytic leukaemia
     Dosage: 45 MG, 2X/DAY
     Route: 048
     Dates: start: 20210921
  3. PREDNISONE [Suspect]
     Active Substance: PREDNISONE
     Indication: Acute lymphocytic leukaemia
     Dosage: TABLET 20 MG, DAILY
     Route: 048
     Dates: start: 20201119
  4. PREDNISONE [Suspect]
     Active Substance: PREDNISONE
     Dosage: TABLET 15 MG, NIGHTLY
     Route: 048
     Dates: start: 20201119
  5. METHOTREXATE [Suspect]
     Active Substance: METHOTREXATE
     Indication: Acute lymphocytic leukaemia
     Dosage: TABLET 10 MG, WEEKLY (EVERY 7 DAYS)
     Route: 048
     Dates: start: 20210921
  6. METHOTREXATE SODIUM [Suspect]
     Active Substance: METHOTREXATE SODIUM
     Indication: Acute lymphocytic leukaemia
     Dosage: 12 MG, ONCE
     Route: 037
     Dates: start: 20190816
  7. MERCAPTOPURINE [Suspect]
     Active Substance: MERCAPTOPURINE
     Indication: Acute lymphocytic leukaemia
     Dosage: TABLET 350 MG, WEEKLY
     Route: 048
     Dates: start: 20211018

REACTIONS (1)
  - Pneumococcal bacteraemia [Recovered/Resolved]

NARRATIVE: CASE EVENT DATE: 20211015
